FAERS Safety Report 8633198 (Version 3)
Quarter: 2012Q4

REPORT INFORMATION
  Report Type: 
  Country: US (occurrence: US)
  Receive Date: 20120625
  Receipt Date: 20121206
  Transmission Date: 20130627
  Serious: Yes (Death, Other)
  Sender: FDA-Public Use
  Company Number: US-BRISTOL-MYERS SQUIBB COMPANY-16692170

PATIENT
  Age: 66 Year
  Sex: Male

DRUGS (1)
  1. YERVOY [Suspect]
     Dates: start: 20120607

REACTIONS (4)
  - Death [Fatal]
  - Urticaria [Recovering/Resolving]
  - Rash [Recovering/Resolving]
  - Ear pain [Recovering/Resolving]
